FAERS Safety Report 8075488-8 (Version None)
Quarter: 2012Q1

REPORT INFORMATION
  Report Type: 
  Country: None (occurrence: None)
  Receive Date: 20120127
  Receipt Date: 20120123
  Transmission Date: 20120608
  Serious: Yes (Hospitalization)
  Sender: FDA-Public Use
  Company Number: FR-PFIZER INC-K201101029

PATIENT
  Age: 55 Year
  Sex: Female

DRUGS (4)
  1. LASIX [Suspect]
     Indication: MYOCARDIAL ISCHAEMIA
     Dosage: UNK
     Route: 048
     Dates: end: 20110307
  2. RAMIPRIL [Suspect]
     Dosage: UNK
     Route: 048
     Dates: end: 20110307
  3. CIPROFLOXACIN [Suspect]
     Indication: LUNG DISORDER
     Dosage: UNK
  4. NEBIVOLOL [Suspect]
     Indication: MYOCARDIAL ISCHAEMIA
     Dosage: UNK
     Route: 048
     Dates: end: 20110307

REACTIONS (5)
  - DEHYDRATION [None]
  - RENAL FAILURE ACUTE [None]
  - DYSPHAGIA [None]
  - ORAL FUNGAL INFECTION [None]
  - LUNG DISORDER [None]
